FAERS Safety Report 16846092 (Version 1)
Quarter: 2019Q3

REPORT INFORMATION
  Report Type: Spontaneous
  Country: US (occurrence: US)
  Receive Date: 20190924
  Receipt Date: 20190924
  Transmission Date: 20191005
  Serious: Yes (Other)
  Sender: FDA-Public Use
  Company Number: US-GLAXOSMITHKLINE-US2019168803

PATIENT

DRUGS (3)
  1. EXCEDRIN TENSION HEADACHE [Suspect]
     Active Substance: ACETAMINOPHEN\CAFFEINE
     Indication: PRODUCT USED FOR UNKNOWN INDICATION
  2. IBUPROFEN. [Suspect]
     Active Substance: IBUPROFEN
     Indication: PRODUCT USED FOR UNKNOWN INDICATION
  3. EXCEDRIN TENSION HEADACHE [Suspect]
     Active Substance: ACETAMINOPHEN\CAFFEINE
     Indication: TENSION HEADACHE
     Dosage: UNK

REACTIONS (3)
  - Drug dependence [Unknown]
  - Energy increased [Unknown]
  - Drug ineffective [Unknown]
